FAERS Safety Report 5048474-X (Version None)
Quarter: 2006Q3

REPORT INFORMATION
  Report Type: 
  Country: None (occurrence: None)
  Receive Date: 20060705
  Receipt Date: 20060619
  Transmission Date: 20061208
  Serious: Yes (Other)
  Sender: FDA-Public Use
  Company Number: 200610607BFR

PATIENT
  Age: 75 Year
  Sex: Male

DRUGS (17)
  1. SORAFENIB [Suspect]
     Indication: HEPATIC NEOPLASM MALIGNANT
     Dosage: 400 MG, BID, ORAL - SEE IMAGE
     Route: 048
     Dates: start: 20030502, end: 20030527
  2. SORAFENIB [Suspect]
     Indication: HEPATIC NEOPLASM MALIGNANT
     Dosage: 400 MG, BID, ORAL - SEE IMAGE
     Route: 048
     Dates: start: 20030528, end: 20030623
  3. SORAFENIB [Suspect]
     Indication: HEPATIC NEOPLASM MALIGNANT
     Dosage: 400 MG, BID, ORAL - SEE IMAGE
     Route: 048
     Dates: start: 20030624, end: 20030723
  4. SORAFENIB [Suspect]
     Indication: HEPATIC NEOPLASM MALIGNANT
     Dosage: 400 MG, BID, ORAL - SEE IMAGE
     Route: 048
     Dates: start: 20030724, end: 20030904
  5. SORAFENIB [Suspect]
     Indication: HEPATIC NEOPLASM MALIGNANT
     Dosage: 400 MG, BID, ORAL - SEE IMAGE
     Route: 048
     Dates: start: 20030807, end: 20030904
  6. SORAFENIB [Suspect]
     Indication: HEPATIC NEOPLASM MALIGNANT
     Dosage: 400 MG, BID, ORAL - SEE IMAGE
     Route: 048
     Dates: start: 20030905, end: 20031002
  7. SORAFENIB [Suspect]
     Indication: HEPATIC NEOPLASM MALIGNANT
     Dosage: 400 MG, BID, ORAL - SEE IMAGE
     Route: 048
     Dates: start: 20031003, end: 20031106
  8. SORAFENIB [Suspect]
     Indication: HEPATIC NEOPLASM MALIGNANT
     Dosage: 400 MG, BID, ORAL - SEE IMAGE
     Route: 048
     Dates: start: 20031107, end: 20031128
  9. SORAFENIB [Suspect]
     Indication: HEPATIC NEOPLASM MALIGNANT
     Dosage: 400 MG, BID, ORAL - SEE IMAGE
     Route: 048
     Dates: start: 20031129, end: 20031219
  10. SORAFENIB [Suspect]
     Indication: HEPATIC NEOPLASM MALIGNANT
     Dosage: 400 MG, BID, ORAL - SEE IMAGE
     Route: 048
     Dates: start: 20031220, end: 20040112
  11. SORAFENIB [Suspect]
     Indication: HEPATIC NEOPLASM MALIGNANT
     Dosage: 400 MG, BID, ORAL - SEE IMAGE
     Route: 048
     Dates: start: 20040113, end: 20040213
  12. SORAFENIB [Suspect]
     Indication: HEPATIC NEOPLASM MALIGNANT
     Dosage: 400 MG, BID, ORAL - SEE IMAGE
     Route: 048
     Dates: start: 20040214, end: 20040308
  13. SORAFENIB [Suspect]
     Indication: HEPATIC NEOPLASM MALIGNANT
     Dosage: 400 MG, BID, ORAL - SEE IMAGE
     Route: 048
     Dates: start: 20040309, end: 20040406
  14. SORAFENIB [Suspect]
     Indication: HEPATIC NEOPLASM MALIGNANT
     Dosage: 400 MG, BID, ORAL - SEE IMAGE
     Route: 048
     Dates: start: 20040407, end: 20040717
  15. SORAFENIB [Suspect]
     Indication: HEPATIC NEOPLASM MALIGNANT
     Dosage: 400 MG, BID, ORAL - SEE IMAGE
     Route: 048
     Dates: start: 20040730, end: 20050512
  16. SORAFENIB [Suspect]
     Indication: HEPATIC NEOPLASM MALIGNANT
     Dosage: 400 MG, BID, ORAL - SEE IMAGE
     Route: 048
     Dates: start: 20040512, end: 20050517
  17. SORAFENIB [Suspect]
     Indication: HEPATIC NEOPLASM MALIGNANT
     Dosage: 400 MG, BID, ORAL - SEE IMAGE
     Route: 048
     Dates: start: 20050517

REACTIONS (1)
  - KERATOACANTHOMA [None]
